FAERS Safety Report 6957067-6 (Version None)
Quarter: 2010Q3

REPORT INFORMATION
  Report Type: 
  Country: None (occurrence: None)
  Receive Date: 20100831
  Receipt Date: 20100823
  Transmission Date: 20110219
  Serious: Yes (Other)
  Sender: FDA-Public Use
  Company Number: US-BIOGENIDEC-2010BI012906

PATIENT
  Age: 41 Year
  Sex: Female

DRUGS (3)
  1. TYSABRI [Suspect]
     Indication: MULTIPLE SCLEROSIS
     Route: 042
     Dates: start: 20070426, end: 20091113
  2. TYSABRI [Suspect]
     Route: 042
     Dates: start: 20100806
  3. MEDICATION (NOS) [Concomitant]

REACTIONS (4)
  - BRAIN OEDEMA [None]
  - DIPLOPIA [None]
  - DRUG LEVEL ABOVE THERAPEUTIC [None]
  - HEADACHE [None]
